FAERS Safety Report 23073678 (Version 1)
Quarter: 2023Q4

REPORT INFORMATION
  Report Type: Report from Study
  Country: IT (occurrence: IT)
  Receive Date: 20231017
  Receipt Date: 20231017
  Transmission Date: 20240109
  Serious: Yes (Other)
  Sender: FDA-Public Use
  Company Number: None

PATIENT
  Age: 50 Year
  Sex: Female

DRUGS (2)
  1. PACLITAXEL [Suspect]
     Active Substance: PACLITAXEL
     Indication: Breast cancer
     Dosage: REACTIONS MANIFESTED AFTER IV CYCLE - START OF THERAPY 16/06/2023 - THERAPY?EVERY 7 DAYS
     Dates: start: 20230707, end: 20230707
  2. TRASTUZUMAB [Suspect]
     Active Substance: TRASTUZUMAB
     Indication: Breast cancer
     Dosage: REACTIONS MANIFESTED AFTER IV CYCLE - START OF THERAPY 16/06/2023 - THERAPY?EVERY 7 DAYS
     Dates: start: 20230707, end: 20230707

REACTIONS (4)
  - Paraesthesia [Recovering/Resolving]
  - Azotaemia [Recovering/Resolving]
  - Neutropenia [Recovered/Resolved]
  - Leukopenia [Recovered/Resolved]

NARRATIVE: CASE EVENT DATE: 20230707
